FAERS Safety Report 11858668 (Version 3)
Quarter: 2016Q1

REPORT INFORMATION
  Report Type: Report from Study
  Country: US (occurrence: US)
  Receive Date: 20151222
  Receipt Date: 20160314
  Transmission Date: 20160526
  Serious: Yes (Hospitalization)
  Sender: FDA-Public Use
  Company Number: US-BEH-2015056861

PATIENT
  Age: 84 Year
  Sex: Male
  Weight: 121 kg

DRUGS (35)
  1. COUMADIN [Concomitant]
     Active Substance: WARFARIN SODIUM
  2. SINGULAIR [Concomitant]
     Active Substance: MONTELUKAST SODIUM
  3. LYRICA [Concomitant]
     Active Substance: PREGABALIN
  4. DOCUSATE CALCIUM. [Concomitant]
     Active Substance: DOCUSATE CALCIUM
  5. MONTELUKAST [Concomitant]
     Active Substance: MONTELUKAST SODIUM
  6. TRAMADOL. [Concomitant]
     Active Substance: TRAMADOL
  7. CYANOCOBALAMIN. [Concomitant]
     Active Substance: CYANOCOBALAMIN
  8. FISH OIL [Concomitant]
     Active Substance: FISH OIL
  9. PREDNISONE. [Concomitant]
     Active Substance: PREDNISONE
  10. SPIRONOLACTONE. [Concomitant]
     Active Substance: SPIRONOLACTONE
  11. THEOPHYLLINE [Concomitant]
     Active Substance: THEOPHYLLINE ANHYDROUS
  12. SODIUM CHLORIDE. [Concomitant]
     Active Substance: SODIUM CHLORIDE
  13. CELEBREX [Concomitant]
     Active Substance: CELECOXIB
  14. VITAMIN D [Concomitant]
     Active Substance: CHOLECALCIFEROL
  15. OXYGEN. [Concomitant]
     Active Substance: OXYGEN
  16. ZEMAIRA [Suspect]
     Active Substance: .ALPHA.1-PROTEINASE INHIBITOR HUMAN
     Indication: ALPHA-1 ANTI-TRYPSIN DEFICIENCY
     Route: 042
  17. ZEMAIRA [Suspect]
     Active Substance: .ALPHA.1-PROTEINASE INHIBITOR HUMAN
     Dosage: 972 MG/VL
     Route: 042
     Dates: start: 20100611
  18. ASPIRIN. [Concomitant]
     Active Substance: ASPIRIN
  19. EPIPEN [Concomitant]
     Active Substance: EPINEPHRINE
  20. FLOMAX [Concomitant]
     Active Substance: TAMSULOSIN HYDROCHLORIDE
  21. ULORIC [Concomitant]
     Active Substance: FEBUXOSTAT
  22. MELOXICAM. [Concomitant]
     Active Substance: MELOXICAM
  23. LYRICA [Concomitant]
     Active Substance: PREGABALIN
  24. LISINOPRIL. [Concomitant]
     Active Substance: LISINOPRIL
  25. MULTIVITAMINS [Concomitant]
     Active Substance: VITAMINS
  26. OMEPRAZOLE. [Concomitant]
     Active Substance: OMEPRAZOLE
  27. PROTONIX [Concomitant]
     Active Substance: PANTOPRAZOLE SODIUM
  28. FOLIC ACID. [Concomitant]
     Active Substance: FOLIC ACID
  29. AZOR [Concomitant]
     Active Substance: AMLODIPINE BESYLATE\OLMESARTAN MEDOXOMIL
  30. SOTALOL. [Concomitant]
     Active Substance: SOTALOL
  31. DIPHENHYDRAMINE. [Concomitant]
     Active Substance: DIPHENHYDRAMINE
  32. MUCINEX [Concomitant]
     Active Substance: GUAIFENESIN
  33. FUROSEMIDE. [Concomitant]
     Active Substance: FUROSEMIDE
  34. CARVEDILOL. [Concomitant]
     Active Substance: CARVEDILOL
  35. RANITIDINE HYDROCHLORIDE. [Concomitant]
     Active Substance: RANITIDINE HYDROCHLORIDE

REACTIONS (1)
  - Gastric haemorrhage [Recovered/Resolved]

NARRATIVE: CASE EVENT DATE: 20151126
